FAERS Safety Report 8343754-4 (Version None)
Quarter: 2012Q2

REPORT INFORMATION
  Report Type: 
  Country: None (occurrence: None)
  Receive Date: 20120508
  Receipt Date: 20120508
  Transmission Date: 20120825
  Serious: No
  Sender: FDA-Public Use
  Company Number: None

PATIENT
  Age: 38 Year
  Sex: Male
  Weight: 74.842 kg

DRUGS (2)
  1. ZYRTEC [Suspect]
     Indication: EYE PRURITUS
     Dosage: 10 MG
     Route: 048
     Dates: start: 20120425, end: 20120504
  2. ZYRTEC [Suspect]
     Indication: HYPERSENSITIVITY
     Dosage: 10 MG
     Route: 048
     Dates: start: 20120425, end: 20120504

REACTIONS (1)
  - PRURITUS [None]
